FAERS Safety Report 5746242-4 (Version None)
Quarter: 2008Q2

REPORT INFORMATION
  Report Type: 
  Country: None (occurrence: None)
  Receive Date: 20080522
  Receipt Date: 20080516
  Transmission Date: 20081010
  Serious: Yes (Other)
  Sender: FDA-Public Use
  Company Number: PHBS2008CH04570

PATIENT
  Age: 34 Year
  Sex: Male

DRUGS (2)
  1. CYCLOSPORINE [Suspect]
     Indication: LUNG TRANSPLANT
     Dosage: 300 MG/D
     Route: 065
     Dates: start: 19950101
  2. AZATHIOPRINE [Suspect]
     Indication: LUNG TRANSPLANT
     Dosage: 50 MG/D
     Route: 065

REACTIONS (12)
  - CHROMOSOME ANALYSIS ABNORMAL [None]
  - ERYTHEMA [None]
  - FOLLICULAR MUCINOSIS [None]
  - HAEMODIALYSIS [None]
  - LYMPHOCYTIC INFILTRATION [None]
  - MYCOSIS FUNGOIDES [None]
  - PRURITUS [None]
  - RASH PUSTULAR [None]
  - RENAL FAILURE CHRONIC [None]
  - RENAL TRANSPLANT [None]
  - SKIN HYPERPIGMENTATION [None]
  - SKIN PLAQUE [None]
